FAERS Safety Report 14048694 (Version 1)
Quarter: 2017Q4

REPORT INFORMATION
  Report Type: Report from Study
  Country: US (occurrence: US)
  Receive Date: 20171005
  Receipt Date: 20171005
  Transmission Date: 20180321
  Serious: No
  Sender: FDA-Public Use
  Company Number: US-AMGEN-USASL2016161928

PATIENT
  Age: 76 Year
  Sex: Female
  Weight: 97 kg

DRUGS (1)
  1. PROLIA [Suspect]
     Active Substance: DENOSUMAB
     Indication: OSTEOPOROSIS POSTMENOPAUSAL
     Dosage: UNK
     Route: 065
     Dates: start: 20160607

REACTIONS (9)
  - Vulvovaginal pruritus [Recovering/Resolving]
  - Sensitivity of teeth [Unknown]
  - Mastication disorder [Unknown]
  - Dermatitis [Unknown]
  - Osteoporosis [Unknown]
  - Bone pain [Unknown]
  - Muscular weakness [Unknown]
  - Oral discomfort [Unknown]
  - Myalgia [Unknown]

NARRATIVE: CASE EVENT DATE: 201606
